FAERS Safety Report 9606317 (Version 1)
Quarter: 2013Q4

REPORT INFORMATION
  Report Type: Spontaneous
  Country: US (occurrence: US)
  Receive Date: 20131008
  Receipt Date: 20131008
  Transmission Date: 20140711
  Serious: No
  Sender: FDA-Public Use
  Company Number: US-AMGEN-USASP2013048330

PATIENT
  Age: 72 Year
  Sex: Female

DRUGS (4)
  1. PROLIA [Suspect]
     Indication: OSTEOPOROSIS POSTMENOPAUSAL
  2. FISH OIL [Concomitant]
  3. CALCIUM [Concomitant]
  4. VITAMIN D                          /00107901/ [Concomitant]

REACTIONS (14)
  - Skin irritation [Unknown]
  - Eye pruritus [Unknown]
  - Throat irritation [Not Recovered/Not Resolved]
  - Oropharyngeal pain [Not Recovered/Not Resolved]
  - Rash macular [Unknown]
  - Skin exfoliation [Unknown]
  - Pain of skin [Unknown]
  - Skin tightness [Unknown]
  - Headache [Unknown]
  - Skin reaction [Unknown]
  - Pruritus [Unknown]
  - Arthralgia [Unknown]
  - Rash [Unknown]
  - Erythema [Unknown]
